FAERS Safety Report 17397129 (Version 1)
Quarter: 2020Q1

REPORT INFORMATION
  Report Type: Spontaneous
  Country: US (occurrence: US)
  Receive Date: 20200207
  Receipt Date: 20200207
  Transmission Date: 20200409
  Serious: Yes (Other)
  Sender: FDA-Public Use
  Company Number: None

PATIENT
  Age: 77 Year
  Sex: Male
  Weight: 101.7 kg

DRUGS (12)
  1. CAPECITABINE. [Suspect]
     Active Substance: CAPECITABINE
     Indication: COLON CANCER
     Route: 048
     Dates: start: 20190718
  2. PROPAFENONE. [Concomitant]
     Active Substance: PROPAFENONE
  3. FISH OIL [Concomitant]
     Active Substance: FISH OIL
  4. METOPROLOL. [Concomitant]
     Active Substance: METOPROLOL
  5. TAMSULOSIN [Concomitant]
     Active Substance: TAMSULOSIN
  6. ELIQUIS [Concomitant]
     Active Substance: APIXABAN
  7. MULTI VITAMIN [Concomitant]
     Active Substance: VITAMINS
  8. FINASTERIDE. [Concomitant]
     Active Substance: FINASTERIDE
  9. POTASSIUM CHLORIDE. [Concomitant]
     Active Substance: POTASSIUM CHLORIDE
  10. FUROSEMIDE. [Concomitant]
     Active Substance: FUROSEMIDE
  11. GABAPENTIN. [Concomitant]
     Active Substance: GABAPENTIN
  12. SIMVASTATIN. [Concomitant]
     Active Substance: SIMVASTATIN

REACTIONS (1)
  - Fatigue [None]

NARRATIVE: CASE EVENT DATE: 20200207
